FAERS Safety Report 21571172 (Version 1)
Quarter: 2022Q4

REPORT INFORMATION
  Report Type: Spontaneous
  Country: US (occurrence: None)
  Receive Date: 20221108
  Receipt Date: 20221108
  Transmission Date: 20230113
  Serious: Yes (Other)
  Sender: FDA-Public Use
  Company Number: None

PATIENT
  Age: 42 Year
  Sex: Female
  Weight: 60.9 kg

DRUGS (1)
  1. VENOFER [Suspect]
     Active Substance: IRON SUCROSE
     Indication: Iron deficiency anaemia
     Dosage: FREQUENCY : WEEKLY;?
     Route: 042
     Dates: start: 20221021

REACTIONS (3)
  - Urticaria [None]
  - Skin discolouration [None]
  - Infusion related reaction [None]

NARRATIVE: CASE EVENT DATE: 20221104
